FAERS Safety Report 5623986-6 (Version None)
Quarter: 2008Q1

REPORT INFORMATION
  Report Type: 
  Country: None (occurrence: None)
  Receive Date: 20080213
  Receipt Date: 20080206
  Transmission Date: 20080703
  Serious: Yes (Hospitalization)
  Sender: FDA-Public Use
  Company Number: FR-WYE-G01006608

PATIENT
  Sex: Male
  Weight: 61 kg

DRUGS (14)
  1. EFFEXOR [Suspect]
     Indication: MAJOR DEPRESSION
     Route: 048
     Dates: end: 20070829
  2. EFFEXOR [Interacting]
     Dosage: UNKNOWN
     Route: 048
     Dates: start: 20070903
  3. MOPRAL [Interacting]
     Route: 048
     Dates: end: 20070829
  4. NORSET [Interacting]
     Indication: MAJOR DEPRESSION
     Route: 048
     Dates: start: 20070831, end: 20070901
  5. TRAMADOL HCL [Interacting]
     Indication: PAIN
     Route: 048
     Dates: start: 20070826, end: 20070929
  6. DRIPTANE [Interacting]
     Indication: URINARY INCONTINENCE
     Route: 048
     Dates: end: 20070829
  7. LASILIX [Concomitant]
     Route: 048
  8. ACETAMINOPHEN [Concomitant]
     Indication: PAIN
     Route: 048
     Dates: start: 20070826, end: 20070906
  9. DIGOXIN [Concomitant]
     Route: 048
     Dates: start: 20070828
  10. ASPEGIC 1000 [Concomitant]
     Route: 048
  11. TAHOR [Concomitant]
     Route: 048
  12. GLUCOPHAGE [Concomitant]
     Route: 048
  13. DI-ANTALVIC [Interacting]
     Indication: PAIN
     Route: 048
     Dates: start: 20070831, end: 20070901
  14. TIAPRIDAL [Interacting]
     Indication: AGITATION
     Route: 048
     Dates: start: 20070901, end: 20070904

REACTIONS (11)
  - CEREBRAL ATROPHY [None]
  - COGNITIVE DISORDER [None]
  - CONFUSIONAL STATE [None]
  - DRUG INTERACTION [None]
  - DRUG WITHDRAWAL SYNDROME [None]
  - FALL [None]
  - HALLUCINATION, VISUAL [None]
  - MINI MENTAL STATUS EXAMINATION ABNORMAL [None]
  - RESTLESSNESS [None]
  - RIB FRACTURE [None]
  - ROAD TRAFFIC ACCIDENT [None]
